FAERS Safety Report 18259282 (Version 2)
Quarter: 2020Q4

REPORT INFORMATION
  Report Type: Report from Study
  Country: CA (occurrence: CA)
  Receive Date: 20200911
  Receipt Date: 20201215
  Transmission Date: 20210113
  Serious: Yes (Other)
  Sender: FDA-Public Use
  Company Number: CA-JNJFOC-20191118136

PATIENT
  Age: 14 Year
  Sex: Female
  Weight: 62 kg

DRUGS (5)
  1. REMICADE [Suspect]
     Active Substance: INFLIXIMAB
     Dosage: DOSE DECREASED
     Route: 042
  2. REMICADE [Suspect]
     Active Substance: INFLIXIMAB
     Indication: COLITIS ULCERATIVE
     Dosage: DOSE: 600 MG, 5TH INFUSION RECEIVED ON 21-NOV-2019
     Route: 042
     Dates: start: 20190903
  3. REMICADE [Suspect]
     Active Substance: INFLIXIMAB
     Dosage: DOSE: 600 MG, 5TH INFUSION RECEIVED ON 21-NOV-2019
     Route: 042
  4. REMICADE [Suspect]
     Active Substance: INFLIXIMAB
     Route: 042
  5. REMICADE [Suspect]
     Active Substance: INFLIXIMAB
     Indication: CROHN^S DISEASE
     Route: 042

REACTIONS (4)
  - General physical health deterioration [Unknown]
  - Diarrhoea [Unknown]
  - Haematochezia [Unknown]
  - Drug level decreased [Unknown]

NARRATIVE: CASE EVENT DATE: 20191120
